FAERS Safety Report 14793357 (Version 6)
Quarter: 2019Q4

REPORT INFORMATION
  Report Type: Report from Study
  Country: DE (occurrence: DE)
  Receive Date: 20180423
  Receipt Date: 20191223
  Transmission Date: 20200122
  Serious: Yes (Other)
  Sender: FDA-Public Use
  Company Number: DE-SA-2018SA107779

PATIENT
  Age: 5 Year
  Sex: Female

DRUGS (17)
  1. ALEMTUZUMAB [Suspect]
     Active Substance: ALEMTUZUMAB
     Indication: BONE MARROW CONDITIONING REGIMEN
     Dosage: 0.2 MG/KG, QD; (ON DAYS -9 AND -8 )
  2. MYCOPHENOLATE MOFETIL. [Suspect]
     Active Substance: MYCOPHENOLATE MOFETIL
     Indication: PROPHYLAXIS AGAINST GRAFT VERSUS HOST DISEASE
     Dosage: 15 MG/KG, TID (FROM DAY +5 TO DAY +35 OF THE HSCT)); ROUTE IV NOS AND ORAL
  3. LEVETIRACETAM. [Concomitant]
     Active Substance: LEVETIRACETAM
     Indication: PROPHYLAXIS
     Dosage: UNK
  4. FLUDARABINE PHOSPHATE. [Suspect]
     Active Substance: FLUDARABINE PHOSPHATE
     Indication: BONE MARROW CONDITIONING REGIMEN
  5. TREOSULFAN [Suspect]
     Active Substance: TREOSULFAN
     Indication: BONE MARROW CONDITIONING REGIMEN
     Dosage: 14 G/M2,QD ON DAYS -7 TO -5 OF THE HSCT
     Route: 065
  6. HYDROXYCARBAMIDE [Concomitant]
     Active Substance: HYDROXYUREA
     Indication: SICKLE CELL DISEASE
     Dosage: UNK UNK,UNK
     Route: 065
  7. TACROLIMUS. [Suspect]
     Active Substance: TACROLIMUS
     Indication: PROPHYLAXIS AGAINST GRAFT VERSUS HOST DISEASE
     Dosage: UNK; FROM DAY +5 UNTIL DAY +100 OF THE HSCT
     Route: 042
  8. TACROLIMUS. [Suspect]
     Active Substance: TACROLIMUS
     Dosage: (PLASMA TROUGH LEVELS:5-15 NG/ML) FROM DAY +5 UNTIL DAY +100FROM DAY +5 UNTIL DAY +100 OF THE HSCT
     Route: 048
  9. GRANULOCYTE COLONY STIMULATING FACTOR [Concomitant]
     Active Substance: GRANULOCYTE COLONY-STIMULATING FACTOR NOS
     Indication: PRODUCT USED FOR UNKNOWN INDICATION
     Dosage: 5 UG/KG, QD; FROM DAY +5 UNTIL ENGRAFTMENT
     Route: 042
  10. FLUDARABINE PHOSPHATE. [Suspect]
     Active Substance: FLUDARABINE PHOSPHATE
     Indication: SICKLE CELL DISEASE
     Dosage: 30 MG/M2, QD; (ON DAYS -7 TO -3 )
  11. THIOTEPA. [Suspect]
     Active Substance: THIOTEPA
     Indication: BONE MARROW CONDITIONING REGIMEN
     Dosage: 5 MG/KG, BID (10 MG/KG DAILY; 5 MILLIGRAM, TWO TIMES A DAY, ON DAY -4 OF THE HSCT)
     Route: 065
  12. THIOTEPA. [Suspect]
     Active Substance: THIOTEPA
     Indication: SICKLE CELL DISEASE
  13. CYCLOPHOSPHAMIDE. [Suspect]
     Active Substance: CYCLOPHOSPHAMIDE
     Indication: PROPHYLAXIS AGAINST GRAFT VERSUS HOST DISEASE
  14. ALEMTUZUMAB [Suspect]
     Active Substance: ALEMTUZUMAB
     Indication: SICKLE CELL DISEASE
  15. CYCLOPHOSPHAMIDE. [Suspect]
     Active Substance: CYCLOPHOSPHAMIDE
     Indication: SICKLE CELL DISEASE
     Dosage: 14.5 MG/KG, QD; (ON DAYS -3 AND -2 )
  16. TREOSULFAN [Suspect]
     Active Substance: TREOSULFAN
     Indication: SICKLE CELL DISEASE
  17. CYCLOPHOSPHAMIDE. [Suspect]
     Active Substance: CYCLOPHOSPHAMIDE
     Indication: BONE MARROW CONDITIONING REGIMEN
     Dosage: 50 MG/KG, QD; (N DAYS +3 AND +4 )

REACTIONS (2)
  - Cytomegalovirus infection [Recovered/Resolved]
  - Off label use [Unknown]
